FAERS Safety Report 6165321-3 (Version None)
Quarter: 2009Q2

REPORT INFORMATION
  Report Type: 
  Country: None (occurrence: None)
  Receive Date: 20090421
  Receipt Date: 20090421
  Transmission Date: 20091009
  Serious: Yes (Other)
  Sender: FDA-Public Use
  Company Number: None

PATIENT
  Age: 47 Year
  Sex: Male
  Weight: 104.3273 kg

DRUGS (2)
  1. PRISTIQ [Suspect]
     Indication: ANXIETY
     Dosage: 50MG ONCE PER DAY PO
     Route: 048
     Dates: start: 20090401, end: 20090406
  2. PRISTIQ [Suspect]
     Indication: DEPRESSION
     Dosage: 50MG ONCE PER DAY PO
     Route: 048
     Dates: start: 20090401, end: 20090406

REACTIONS (3)
  - ARTHRALGIA [None]
  - MYALGIA [None]
  - SENSATION OF PRESSURE [None]
